FAERS Safety Report 8938997 (Version 2)
Quarter: 2014Q1

REPORT INFORMATION
  Report Type: Spontaneous
  Country: US (occurrence: US)
  Receive Date: 20121203
  Receipt Date: 20140117
  Transmission Date: 20141002
  Serious: Yes (Other)
  Sender: FDA-Public Use
  Company Number: US-BAYER-2012-125495

PATIENT
  Age: 17 Year
  Sex: Female

DRUGS (5)
  1. YASMIN [Suspect]
  2. YAZ [Suspect]
  3. OCELLA [Suspect]
  4. CIPRO [Concomitant]
     Dosage: UNK
     Dates: start: 20060402
  5. PERCOCET [Concomitant]
     Indication: PAIN
     Dosage: ONE TO TWO TABS EVERY 4 TO 6 HOURS AS NEEDED
     Dates: start: 20060402

REACTIONS (6)
  - Cholecystectomy [None]
  - Cholecystitis chronic [None]
  - Injury [None]
  - Pain [None]
  - Emotional distress [None]
  - Pain [None]
